FAERS Safety Report 7576108-9 (Version None)
Quarter: 2011Q2

REPORT INFORMATION
  Report Type: 
  Country: None (occurrence: None)
  Receive Date: 20110623
  Receipt Date: 20110623
  Transmission Date: 20111010
  Serious: No
  Sender: FDA-Public Use
  Company Number: None

PATIENT
  Age: 81 Year
  Sex: Female
  Weight: 58.9676 kg

DRUGS (2)
  1. CILOSTAZOL [Suspect]
     Indication: PAIN
     Dosage: 1 TABLET TWICE PER DAY MOUTH
     Route: 048
     Dates: start: 20110505, end: 20110606
  2. CILOSTAZOL [Suspect]
     Indication: INTERMITTENT CLAUDICATION
     Dosage: 1 TABLET TWICE PER DAY MOUTH
     Route: 048
     Dates: start: 20110505, end: 20110606

REACTIONS (5)
  - PHARYNGEAL OEDEMA [None]
  - DYSPHAGIA [None]
  - CONSTIPATION [None]
  - CHOKING SENSATION [None]
  - MOVEMENT DISORDER [None]
